FAERS Safety Report 10738270 (Version 1)
Quarter: 2015Q1

REPORT INFORMATION
  Report Type: Spontaneous
  Country: US (occurrence: None)
  Receive Date: 20150122
  Receipt Date: 20150122
  Transmission Date: 20150721
  Serious: No
  Sender: FDA-Public Use
  Company Number: None

PATIENT
  Age: 64 Year
  Sex: Female

DRUGS (1)
  1. XENAZINE [Suspect]
     Active Substance: TETRABENAZINE
     Indication: CHOREA
     Dosage: 6.5 MG AND 12.5 MG QD

REACTIONS (6)
  - Nasopharyngitis [None]
  - Fall [None]
  - Delirium [None]
  - Confusional state [None]
  - Ammonia increased [None]
  - Urinary tract infection [None]
